FAERS Safety Report 24772930 (Version 1)
Quarter: 2024Q4

REPORT INFORMATION
  Report Type: Spontaneous
  Country: US (occurrence: US)
  Receive Date: 20241225
  Receipt Date: 20241225
  Transmission Date: 20250114
  Serious: Yes (Other)
  Sender: LUPIN
  Company Number: US-LUPIN PHARMACEUTICALS INC.-2024-12307

PATIENT
  Age: 23 Year
  Sex: Male

DRUGS (1)
  1. LEVOTHYROXINE SODIUM [Suspect]
     Active Substance: LEVOTHYROXINE SODIUM
     Indication: Autoimmune thyroiditis
     Dosage: UNK, HYPERTHYROIDISM WAS CONSIDERED IATROGENIC, AND LEVOTHYROXINE DOSE WAS GRADUALLY REDUCED, BUT EV
     Route: 065

REACTIONS (2)
  - Graves^ disease [Recovered/Resolved]
  - Off label use [Recovered/Resolved]
